FAERS Safety Report 6163218-6 (Version None)
Quarter: 2009Q2

REPORT INFORMATION
  Report Type: 
  Country: None (occurrence: None)
  Receive Date: 20090420
  Receipt Date: 20090409
  Transmission Date: 20091009
  Serious: Yes (Death, Hospitalization)
  Sender: FDA-Public Use
  Company Number: 2008-04841

PATIENT
  Age: 76 Year
  Sex: Male
  Weight: 80.8 kg

DRUGS (4)
  1. VELCADE [Suspect]
     Indication: ACUTE MYELOID LEUKAEMIA
     Dosage: 1.3 MG/M2, INTRAVENOUS, 1.3 MG/M2, INTRAVENOUS
     Route: 042
     Dates: start: 20081113, end: 20081225
  2. VELCADE [Suspect]
     Indication: ACUTE MYELOID LEUKAEMIA
     Dosage: 1.3 MG/M2, INTRAVENOUS, 1.3 MG/M2, INTRAVENOUS
     Route: 042
     Dates: start: 20090115
  3. DECITABINE(DECITABINE) [Suspect]
     Indication: ACUTE MYELOID LEUKAEMIA
     Dosage: 20 MG/M2, INTRAVENOUS, 20 MG/M2, INTRAVENOUS
     Route: 042
     Dates: start: 20081113, end: 20081219
  4. DECITABINE(DECITABINE) [Suspect]
     Indication: ACUTE MYELOID LEUKAEMIA
     Dosage: 20 MG/M2, INTRAVENOUS, 20 MG/M2, INTRAVENOUS
     Route: 042
     Dates: start: 20090115, end: 20090118

REACTIONS (14)
  - ACINETOBACTER BACTERAEMIA [None]
  - ACUTE MYELOID LEUKAEMIA [None]
  - ANOREXIA [None]
  - BLOOD ALKALINE PHOSPHATASE INCREASED [None]
  - CONFUSIONAL STATE [None]
  - DRUG DOSE OMISSION [None]
  - FATIGUE [None]
  - FEBRILE NEUTROPENIA [None]
  - FUNGAL INFECTION [None]
  - HEPATOSPLENIC CANDIDIASIS [None]
  - HYPOXIA [None]
  - LABORATORY TEST INTERFERENCE [None]
  - LOBAR PNEUMONIA [None]
  - NEUTROPENIA [None]
